FAERS Safety Report 25201925 (Version 1)
Quarter: 2025Q2

REPORT INFORMATION
  Report Type: Spontaneous
  Country: US (occurrence: US)
  Receive Date: 20250416
  Receipt Date: 20250416
  Transmission Date: 20250717
  Serious: Yes (Other)
  Sender: AUROBINDO
  Company Number: US-MLMSERVICE-20231120-4668794-1

PATIENT
  Age: 4 Year
  Sex: Male

DRUGS (5)
  1. METHOTREXATE [Suspect]
     Active Substance: METHOTREXATE
     Indication: B-cell type acute leukaemia
     Route: 065
  2. PREDNISONE [Suspect]
     Active Substance: PREDNISONE
     Indication: B-cell type acute leukaemia
     Dosage: 10 MILLIGRAM, TWO TIMES A DAY
     Route: 065
  3. CLOFARABINE [Suspect]
     Active Substance: CLOFARABINE
     Indication: B-cell type acute leukaemia
     Route: 065
  4. NIVOLUMAB [Suspect]
     Active Substance: NIVOLUMAB
     Indication: B-cell type acute leukaemia
     Route: 042
  5. IPILIMUMAB [Suspect]
     Active Substance: IPILIMUMAB
     Indication: B-cell type acute leukaemia
     Route: 065

REACTIONS (6)
  - Nephropathy toxic [Unknown]
  - Drug intolerance [Unknown]
  - Vomiting [Unknown]
  - Nausea [Unknown]
  - Malnutrition [Unknown]
  - Pancytopenia [Unknown]
